FAERS Safety Report 6637623-5 (Version None)
Quarter: 2010Q1

REPORT INFORMATION
  Report Type: 
  Country: None (occurrence: None)
  Receive Date: 20100312
  Receipt Date: 20100303
  Transmission Date: 20100710
  Serious: Yes (Hospitalization)
  Sender: FDA-Public Use
  Company Number: CIO10003226

PATIENT
  Age: 69 Year
  Sex: Male
  Weight: 106.8 kg

DRUGS (15)
  1. PEPTO-BISMOL ORIGINAL FORMULA, FLAVOR UNKNOWN (BISMUTH SUBSALICYLATE 2 [Suspect]
     Indication: GASTROOESOPHAGEAL REFLUX DISEASE
     Dosage: 262 MG, AS NEEDED, ORAL
     Route: 048
     Dates: end: 20100129
  2. PEPTO-BISMOL ORIGINAL FORMULA, FLAVOR UNKNOWN (BISMUTH SUBSALICYLATE 2 [Suspect]
     Indication: OESOPHAGITIS
     Dosage: 262 MG, AS NEEDED, ORAL
     Route: 048
     Dates: end: 20100129
  3. PRADAXA [Suspect]
     Indication: PROPHYLAXIS
     Dosage: ORAL
     Route: 048
     Dates: start: 20060526
  4. PRADAXA [Suspect]
     Indication: THROMBOSIS PROPHYLAXIS
     Dosage: ORAL
     Route: 048
     Dates: start: 20060526
  5. ALEVE [Suspect]
     Indication: TOOTHACHE
     Dosage: 220 MG, AS NEEDED, ORAL
     Route: 048
     Dates: start: 20100115, end: 20100129
  6. ADVAIR DISKUS 100/50 [Concomitant]
  7. BENICAR [Concomitant]
  8. CORGARD [Concomitant]
  9. HYDROCHLOROTHIAZIDE [Concomitant]
  10. LEVOXYL [Concomitant]
  11. MULTIVITAMIN (ASCORBIC ACID, CALCIUM PANTOTHENATE, ERGOCALCIFEROL, NIC [Concomitant]
  12. PRILOSEC OTC (OMEPRAZOLE MAGNESIUM) [Concomitant]
  13. TEMAZEPAM [Concomitant]
  14. TYLENOL PM (DIPHENHYDRAMINE HYDROCHLORIDE, PARACETAMOL) [Concomitant]
  15. VENTOLIN [Concomitant]

REACTIONS (1)
  - ANAEMIA [None]
